FAERS Safety Report 23467880 (Version 2)
Quarter: 2024Q2

REPORT INFORMATION
  Report Type: Spontaneous
  Country: US (occurrence: US)
  Receive Date: 20240201
  Receipt Date: 20240422
  Transmission Date: 20240715
  Serious: Yes (Other)
  Sender: FDA-Public Use
  Company Number: US-AstraZeneca-CH-00534446A

PATIENT
  Age: 77 Year

DRUGS (1)
  1. ULTOMIRIS [Suspect]
     Active Substance: RAVULIZUMAB-CWVZ
     Indication: Myasthenia gravis
     Route: 042

REACTIONS (8)
  - Diabetes mellitus [Unknown]
  - Therapeutic response shortened [Unknown]
  - Eyelid ptosis [Unknown]
  - Diplopia [Unknown]
  - Hypertension [Unknown]
  - Hyperlipidaemia [Unknown]
  - Anxiety [Unknown]
  - Depression [Unknown]
